FAERS Safety Report 21749680 (Version 1)
Quarter: 2022Q4

REPORT INFORMATION
  Report Type: Spontaneous
  Country: IR (occurrence: IR)
  Receive Date: 20221219
  Receipt Date: 20221219
  Transmission Date: 20230113
  Serious: Yes (Hospitalization, Other)
  Sender: FDA-Public Use
  Company Number: IR-ALLERGAN-2241382US

PATIENT
  Sex: Male

DRUGS (1)
  1. BOTULINUM TOXIN TYPE A [Suspect]
     Active Substance: BOTULINUM TOXIN TYPE A
     Indication: Blepharospasm
     Dosage: UNK, SINGLE

REACTIONS (2)
  - Ophthalmic herpes zoster [Recovering/Resolving]
  - Encephalitis [Recovering/Resolving]
